FAERS Safety Report 4559392-5 (Version None)
Quarter: 2005Q1

REPORT INFORMATION
  Report Type: 
  Country: None (occurrence: None)
  Receive Date: 20050119
  Receipt Date: 20050118
  Transmission Date: 20050727
  Serious: Yes (Other)
  Sender: FDA-Public Use
  Company Number: HQWYE429207JAN05

PATIENT
  Age: 53 Year
  Sex: Male

DRUGS (20)
  1. AMIODARONE HCL [Suspect]
     Indication: VENTRICULAR FIBRILLATION
     Dosage: 7 MG/KG OVER TWO HOURS; INTRAVENOUS
     Route: 042
  2. AMIODARONE HCL [Suspect]
     Dosage: 10 MG/KG/DAY MAINTENANCE THERAPY; INTRAVENOUS
     Route: 042
  3. AMIODARONE HCL [Suspect]
     Indication: VENTRICULAR FIBRILLATION
     Dosage: ORAL
     Route: 048
  4. NITRENDIPINE [Concomitant]
  5. METOPROLOL TARTRATE [Concomitant]
  6. DIAZEPAM [Concomitant]
  7. MORPHINE [Concomitant]
  8. THIOPENTAL SODIUM [Concomitant]
  9. FENTANYL [Concomitant]
  10. PANCURONIUM [Concomitant]
  11. ISOFLURANE [Concomitant]
  12. NITROGLYCERIN [Concomitant]
  13. LIDOCAINE [Concomitant]
  14. ..... [Concomitant]
  15. DOPAMINE HCL [Concomitant]
  16. ISOSORBIDE [Concomitant]
  17. ENALAPRIL MALEATE [Concomitant]
  18. ASPIRIN [Concomitant]
  19. ACETYLCYSTEINE [Concomitant]
  20. FAMOTIDINE [Concomitant]

REACTIONS (17)
  - ANXIETY [None]
  - ATRIOVENTRICULAR BLOCK SECOND DEGREE [None]
  - BLOOD CREATININE INCREASED [None]
  - BLOOD UREA INCREASED [None]
  - BRADYCARDIA [None]
  - CARDIAC ARREST [None]
  - DRUG TOXICITY [None]
  - ELECTROCARDIOGRAM QT PROLONGED [None]
  - ELECTROCARDIOGRAM ST SEGMENT ELEVATION [None]
  - HAEMODIALYSIS [None]
  - HYPOTENSION [None]
  - INTERSTITIAL LUNG DISEASE [None]
  - JAUNDICE [None]
  - MULTI-ORGAN FAILURE [None]
  - SKIN DISCOLOURATION [None]
  - TRANSAMINASES INCREASED [None]
  - URINE OUTPUT DECREASED [None]
